FAERS Safety Report 13561675 (Version 1)
Quarter: 2017Q2

REPORT INFORMATION
  Report Type: Spontaneous
  Country: US (occurrence: US)
  Receive Date: 20170518
  Receipt Date: 20170518
  Transmission Date: 20170830
  Serious: Yes (Other)
  Sender: FDA-Public Use
  Company Number: None

PATIENT
  Age: 37 Year
  Weight: 125.2 kg

DRUGS (1)
  1. SUBOXONE [Suspect]
     Active Substance: BUPRENORPHINE HYDROCHLORIDE\NALOXONE HYDROCHLORIDE

REACTIONS (19)
  - Cold sweat [None]
  - Headache [None]
  - Hot flush [None]
  - Nausea [None]
  - Thirst [None]
  - Vomiting [None]
  - Somnolence [None]
  - Insomnia [None]
  - Abdominal pain upper [None]
  - Dizziness [None]
  - Pollakiuria [None]
  - Appetite disorder [None]
  - Diarrhoea [None]
  - Hyperhidrosis [None]
  - Myalgia [None]
  - Muscle spasms [None]
  - Dyspepsia [None]
  - Dry mouth [None]
  - Therapy change [None]

NARRATIVE: CASE EVENT DATE: 20170517
